FAERS Safety Report 9499996 (Version 3)
Quarter: 2013Q3

REPORT INFORMATION
  Report Type: Report from Study
  Country: JP (occurrence: JP)
  Receive Date: 20130905
  Receipt Date: 20130928
  Transmission Date: 20140515
  Serious: Yes (Other)
  Sender: FDA-Public Use
  Company Number: JP-BAYER-2013-103246

PATIENT
  Age: 75 Year
  Sex: Female
  Weight: 48 kg

DRUGS (16)
  1. SORAFENIB (RAF KINASE INHIBITOR) [Suspect]
     Indication: HEPATOCELLULAR CARCINOMA
     Dosage: 800 MG, QD
     Route: 048
     Dates: start: 20090512, end: 20110104
  2. SORAFENIB (RAF KINASE INHIBITOR) [Suspect]
     Indication: HEPATOCELLULAR CARCINOMA
     Dosage: 400 MG, QD
     Route: 048
     Dates: start: 20100113, end: 20100413
  3. SORAFENIB (RAF KINASE INHIBITOR) [Suspect]
     Indication: HEPATOCELLULAR CARCINOMA
     Dosage: 400 MG, QOD
     Route: 048
     Dates: start: 20100414, end: 20110104
  4. CERCINE [Concomitant]
     Indication: DEPRESSION
     Dosage: DAILY DOSE 4 MG
     Route: 048
     Dates: start: 2008
  5. AMOBAN [Concomitant]
     Indication: INSOMNIA
     Dosage: DAILY DOSE 7.5 MG
     Route: 048
     Dates: start: 2008
  6. MUCOSTA [Concomitant]
     Indication: GASTRITIS PROPHYLAXIS
     Dosage: DAILY DOSE 300 MG
     Route: 048
     Dates: start: 1995
  7. URSO [Concomitant]
     Indication: ANTIVIRAL PROPHYLAXIS
     Dosage: DAILY DOSE 300 MG
     Route: 048
     Dates: start: 1995
  8. EVISTA [RALOXIFENE HYDROCHLORIDE] [Concomitant]
     Indication: OSTEOPOROSIS POSTMENOPAUSAL
     Dosage: DAILY DOSE 60 MG
     Route: 048
     Dates: start: 2009
  9. PURSENNID [Concomitant]
     Indication: CONSTIPATION
     Dosage: UNK
     Route: 048
     Dates: start: 2009
  10. ELCITONIN [Concomitant]
     Indication: OSTEOPOROSIS POSTMENOPAUSAL
     Dosage: DAILY DOSE 20 ML
     Dates: start: 2006
  11. YUSKIN I [Concomitant]
     Indication: PALMAR-PLANTAR ERYTHRODYSAESTHESIA SYNDROME
     Dosage: UNK
     Route: 061
     Dates: start: 20090521
  12. HIRUDOID [Concomitant]
     Indication: PALMAR-PLANTAR ERYTHRODYSAESTHESIA SYNDROME
     Dosage: UNK
     Route: 061
     Dates: start: 20090717
  13. KERATINAMIN [Concomitant]
     Indication: PALMAR-PLANTAR ERYTHRODYSAESTHESIA SYNDROME
     Dosage: UNK
     Route: 061
     Dates: start: 20091019
  14. LOPEMIN [Concomitant]
     Indication: DIARRHOEA
     Dosage: 1 MG, PRN
     Route: 048
     Dates: start: 20091224
  15. CONSTAN [Concomitant]
     Indication: DEPRESSION
     Dosage: DAILY DOSE .4 MG
     Route: 048
     Dates: start: 20100406
  16. BLOPRESS [Concomitant]
     Indication: HYPERTENSION
     Dosage: DAILY DOSE 4 MG
     Route: 048
     Dates: start: 20091006

REACTIONS (1)
  - Lung neoplasm malignant [Recovering/Resolving]
